FAERS Safety Report 16150553 (Version 7)
Quarter: 2019Q3

REPORT INFORMATION
  Report Type: Report from Study
  Country: JP (occurrence: JP)
  Receive Date: 20190403
  Receipt Date: 20190709
  Transmission Date: 20191004
  Serious: Yes (Death, Hospitalization, Other)
  Sender: FDA-Public Use
  Company Number: JP-BRISTOL-MYERS SQUIBB COMPANY-BMS-2019-032327

PATIENT
  Age: 73 Year
  Sex: Male
  Weight: 56.3 kg

DRUGS (19)
  1. NIVOLUMAB [Suspect]
     Active Substance: NIVOLUMAB
     Indication: NON-SMALL CELL LUNG CANCER
     Dosage: 180.6 MILLIGRAM, Q2WK
     Route: 041
     Dates: start: 20190306, end: 20190320
  2. FEBURIC [Concomitant]
     Active Substance: FEBUXOSTAT
     Indication: HYPERURICAEMIA
     Dosage: 40 MILLIGRAM, EVERYDAY
     Route: 048
     Dates: end: 20190325
  3. FEXOFENADINE HYDROCHLORIDE. [Concomitant]
     Active Substance: FEXOFENADINE HYDROCHLORIDE
     Indication: RASH
     Dosage: 60 MILLIGRAM, Q12H
     Route: 048
     Dates: start: 20190322
  4. ASPARA POTASSIUM [Concomitant]
     Active Substance: POTASSIUM ASPARTATE
     Indication: HYPOKALAEMIA
     Dosage: 600 MILLIGRAM, Q8H
     Route: 048
     Dates: start: 20190419, end: 20190425
  5. NEO MINOPHAGEN C                   /01582201/ [Concomitant]
     Indication: HEPATIC FUNCTION ABNORMAL
     Dosage: 20 MILLILITER EVERYDAY
     Route: 041
     Dates: start: 20190416, end: 20190430
  6. NARUSUS [Concomitant]
     Active Substance: HYDROMORPHONE HYDROCHLORIDE
     Indication: CANCER PAIN
     Dosage: 6 MILLIGRAM, EVERYDAY
     Route: 048
     Dates: start: 20190308
  7. LANSOPRAZOLE. [Concomitant]
     Active Substance: LANSOPRAZOLE
     Indication: PROPHYLAXIS AGAINST GASTROINTESTINAL ULCER
     Dosage: 15 MILLIGRAM EVERYDAY
     Route: 048
     Dates: start: 20190409
  8. SULBACILLIN [Concomitant]
     Active Substance: AMPICILLIN SODIUM\SULBACTAM SODIUM
     Indication: PNEUMONIA
     Dosage: 1.5 GRAM, Q8H
     Route: 041
     Dates: start: 20190416, end: 20190426
  9. NARUSUS [Concomitant]
     Active Substance: HYDROMORPHONE HYDROCHLORIDE
     Indication: PRODUCT USED FOR UNKNOWN INDICATION
     Dosage: 12 MILLIGRAM EVERYDAY
     Route: 048
     Dates: start: 20190405
  10. NARURAPID [Concomitant]
     Active Substance: HYDROMORPHONE HYDROCHLORIDE
     Indication: CANCER PAIN
     Dosage: 2 MILLIGRAM PRN
     Route: 048
     Dates: start: 20190320
  11. PRAVASTATIN SODIUM. [Concomitant]
     Active Substance: PRAVASTATIN SODIUM
     Indication: HYPERLIPIDAEMIA
     Dosage: 10 MG, EVERYDAY
     Route: 048
     Dates: end: 20190325
  12. SOLYUGEN F [Concomitant]
     Active Substance: CALCIUM CHLORIDE\POTASSIUM CHLORIDE\SODIUM ACETATE\SODIUM CHLORIDE
     Indication: DEHYDRATION
     Dosage: 500 MILLILITER EVERYDAY
     Route: 041
     Dates: start: 20190419, end: 20190421
  13. NARUSUS [Concomitant]
     Active Substance: HYDROMORPHONE HYDROCHLORIDE
     Indication: PRODUCT USED FOR UNKNOWN INDICATION
     Dosage: 2 MILLIGRAM EVERYDAY
     Route: 048
     Dates: start: 20190225
  14. MOGAMULIZUMAB [Suspect]
     Active Substance: MOGAMULIZUMAB
     Indication: NON-SMALL CELL LUNG CANCER
     Dosage: 6 MILLIGRAM, QWK
     Route: 041
     Dates: start: 20190306, end: 20190320
  15. MAGMITT [Concomitant]
     Active Substance: MAGNESIUM OXIDE
     Indication: CONSTIPATION
     Dosage: 330 MILLIGRAM, Q8H
     Route: 048
     Dates: start: 20190313
  16. SYMPROIC [Concomitant]
     Active Substance: NALDEMEDINE
     Indication: CONSTIPATION
     Dosage: 0.2 MILLIGRAM, EVERYDAY
     Route: 048
     Dates: start: 20190318
  17. BFLUID [Concomitant]
     Active Substance: AMINO ACIDS\DEXTROSE\ELECTROLYTES NOS\VITAMINS
     Indication: DEHYDRATION
     Dosage: 500 MILLILITER EVERYDAY
     Route: 041
     Dates: start: 20190417, end: 20190430
  18. ANTEBATE [Concomitant]
     Active Substance: BETAMETHASONE DIPROPIONATE
     Indication: RASH
     Dosage: APPROPRIATE DOSAGE, EVERYDAY
     Route: 061
     Dates: start: 20190322
  19. BIOFERMIN R [Concomitant]
     Active Substance: DIETARY SUPPLEMENT\PROBIOTICS
     Indication: DIARRHOEA
     Dosage: 6 MILLIGRAM, Q8H
     Route: 048
     Dates: start: 20190418, end: 20190502

REACTIONS (3)
  - Diarrhoea [Recovering/Resolving]
  - Vomiting [Recovering/Resolving]
  - Interstitial lung disease [Fatal]

NARRATIVE: CASE EVENT DATE: 20190325
